FAERS Safety Report 10526140 (Version 1)
Quarter: 2014Q4

REPORT INFORMATION
  Report Type: Report from Study
  Country: JP (occurrence: JP)
  Receive Date: 20141017
  Receipt Date: 20141017
  Transmission Date: 20150528
  Serious: Yes (Hospitalization)
  Sender: FDA-Public Use
  Company Number: JP-BAYER-2014-149725

PATIENT
  Age: 63 Year
  Sex: Male
  Weight: 57 kg

DRUGS (13)
  1. SORAFENIB (RAF KINASE INHIBITOR) [Suspect]
     Active Substance: SORAFENIB
     Indication: HEPATOCELLULAR CARCINOMA
     Dosage: 400 MG, BID
     Route: 048
     Dates: start: 20140723, end: 20140901
  2. SORAFENIB (RAF KINASE INHIBITOR) [Suspect]
     Active Substance: SORAFENIB
     Indication: HEPATOCELLULAR CARCINOMA
     Dosage: 400 MG, QD
     Route: 048
     Dates: start: 20140902, end: 20140930
  3. OLMETEC [Concomitant]
     Active Substance: OLMESARTAN MEDOXOMIL
     Indication: HYPERTENSION
     Dosage: 20 MG, OM
     Route: 048
     Dates: start: 20140805
  4. WARFARIN [Concomitant]
     Active Substance: WARFARIN
     Indication: PULMONARY ARTERY THROMBOSIS
     Dosage: UNK
     Route: 048
     Dates: start: 20140909
  5. NERISONA OINTMENT 0.1% [Concomitant]
     Indication: PROPHYLAXIS
     Dosage: UNK
     Route: 061
     Dates: start: 20140718
  6. EDIROL [Suspect]
     Active Substance: ELDECALCITOL
     Indication: PROPHYLAXIS
     Dosage: 0.75 ?G, OM
     Route: 048
     Dates: end: 20141001
  7. WARFARIN [Concomitant]
     Active Substance: WARFARIN
     Indication: PULMONARY ARTERY THROMBOSIS
     Dosage: 2 MG, OM
     Route: 048
     Dates: start: 20140903, end: 20140908
  8. GASTER [Concomitant]
     Active Substance: FAMOTIDINE
     Indication: GASTRITIS
     Dosage: 10 MG, OM
     Route: 048
  9. URSO [Concomitant]
     Active Substance: URSODIOL
     Indication: BILIARY CIRRHOSIS PRIMARY
     Dosage: DAILY DOSE 900 MG
     Route: 048
  10. LASIX [Concomitant]
     Active Substance: FUROSEMIDE
     Indication: ASCITES
     Dosage: 20 MG, OM
     Route: 048
     Dates: start: 20140924
  11. PREDONINE [Concomitant]
     Active Substance: PREDNISOLONE\PREDNISOLONE ACETATE\PREDNISOLONE SODIUM SUCCINATE
     Indication: AUTOIMMUNE HEPATITIS
     Dosage: 5 MG, OM
     Route: 048
  12. KERATINAMIN [Concomitant]
     Active Substance: UREA
     Indication: PROPHYLAXIS
     Dosage: UNK
     Route: 061
     Dates: start: 20140718
  13. CALBLOCK [Concomitant]
     Active Substance: AZELNIDIPINE
     Indication: HYPERTENSION
     Dosage: 16 MG, OM
     Route: 048

REACTIONS (1)
  - Hypercalcaemia [Recovered/Resolved]

NARRATIVE: CASE EVENT DATE: 20141001
